FAERS Safety Report 25330986 (Version 1)
Quarter: 2025Q2

REPORT INFORMATION
  Report Type: Spontaneous
  Country: FR (occurrence: FR)
  Receive Date: 20250519
  Receipt Date: 20250519
  Transmission Date: 20250716
  Serious: Yes (Hospitalization)
  Sender: SANOFI AVENTIS
  Company Number: None

PATIENT
  Age: 79 Year
  Sex: Male
  Weight: 79 kg

DRUGS (3)
  1. RIFAMPIN [Suspect]
     Active Substance: RIFAMPIN
     Indication: Pneumonia
     Dosage: 200 MG, QD
     Route: 048
     Dates: start: 20241223, end: 20250304
  2. ETHAMBUTOL [Suspect]
     Active Substance: ETHAMBUTOL HYDROCHLORIDE
     Indication: Pneumonia
     Dosage: 1250 MG, QD
     Route: 048
     Dates: start: 20241223, end: 20250304
  3. RIFAMPIN [Suspect]
     Active Substance: RIFAMPIN
     Indication: Pneumonia
     Dosage: 900 MG, QD
     Route: 048
     Dates: start: 20241223, end: 20250304

REACTIONS (1)
  - Rash maculo-papular [Recovered/Resolved]

NARRATIVE: CASE EVENT DATE: 20250223
